FAERS Safety Report 8548882-6 (Version None)
Quarter: 2012Q3

REPORT INFORMATION
  Report Type: 
  Country: None (occurrence: None)
  Receive Date: 20120730
  Receipt Date: 20120725
  Transmission Date: 20120928
  Serious: Yes (Other)
  Sender: FDA-Public Use
  Company Number: PHHY2012US064180

PATIENT
  Age: 61 Year
  Sex: Female

DRUGS (7)
  1. FEXOFENADINE [Concomitant]
  2. HYDROXYUREA [Concomitant]
  3. IMATINIB MESYLATE [Suspect]
     Indication: MASTOCYTOSIS
  4. CROMOLYN SODIUM [Concomitant]
  5. PREDNISONE [Concomitant]
  6. FAMOTIDINE [Concomitant]
  7. ALLOPURINOL [Concomitant]

REACTIONS (6)
  - RENAL FAILURE ACUTE [None]
  - RENAL TUBULAR NECROSIS [None]
  - HEPATIC FUNCTION ABNORMAL [None]
  - TUBULOINTERSTITIAL NEPHRITIS [None]
  - JAUNDICE [None]
  - RENAL IMPAIRMENT [None]
